FAERS Safety Report 10080905 (Version 1)
Quarter: 2014Q2

REPORT INFORMATION
  Report Type: Spontaneous
  Country: US (occurrence: US)
  Receive Date: 20140416
  Receipt Date: 20140416
  Transmission Date: 20141212
  Serious: Yes (Hospitalization)
  Sender: FDA-Public Use
  Company Number: US-PERRIGO-14US003669

PATIENT
  Age: 53 Year
  Sex: Male

DRUGS (2)
  1. NAPROXEN RX 500MG 631 [Suspect]
     Indication: LYME DISEASE
     Dosage: 500 MG, BID
     Route: 048
  2. DOXYCYCLINE [Suspect]
     Indication: LYME DISEASE
     Dosage: 100 MG, BID
     Route: 048

REACTIONS (9)
  - Gastric ulcer [Recovered/Resolved]
  - Upper gastrointestinal haemorrhage [Recovered/Resolved]
  - Rectal haemorrhage [Recovered/Resolved]
  - Abdominal tenderness [Recovered/Resolved]
  - Abdominal pain upper [Recovered/Resolved]
  - Nausea [Recovered/Resolved]
  - Tachycardia [Recovered/Resolved]
  - Hypotension [Recovered/Resolved]
  - Drug interaction [Recovered/Resolved]
